FAERS Safety Report 6956738-5 (Version None)
Quarter: 2010Q3

REPORT INFORMATION
  Report Type: 
  Country: None (occurrence: None)
  Receive Date: 20100830
  Receipt Date: 20100819
  Transmission Date: 20110219
  Serious: Yes (Hospitalization)
  Sender: FDA-Public Use
  Company Number: PHHY2010JP34351

PATIENT
  Sex: Female
  Weight: 53 kg

DRUGS (3)
  1. GLEEVEC [Suspect]
     Indication: CHRONIC MYELOID LEUKAEMIA
     Dosage: 400 MG, DAILY
     Route: 048
     Dates: start: 20090331, end: 20100208
  2. GLEEVEC [Suspect]
     Dosage: 200 MG/DAILY
     Dates: start: 20090502
  3. GLEEVEC [Suspect]
     Dosage: 200 MG DAILY
     Dates: start: 20100118, end: 20100208

REACTIONS (3)
  - ENTEROCOLITIS HAEMORRHAGIC [None]
  - GASTROINTESTINAL OEDEMA [None]
  - HAEMATOCHEZIA [None]
